FAERS Safety Report 6531040-4 (Version None)
Quarter: 2010Q1

REPORT INFORMATION
  Report Type: 
  Country: None (occurrence: None)
  Receive Date: 20100108
  Receipt Date: 20091012
  Transmission Date: 20100710
  Serious: No
  Sender: FDA-Public Use
  Company Number: A0811427A

PATIENT
  Sex: Female

DRUGS (6)
  1. LOVAZA [Suspect]
     Indication: DRUG USE FOR UNKNOWN INDICATION
     Dates: start: 20091008
  2. LIPITOR [Concomitant]
     Dosage: 10MG PER DAY
  3. DIOVAN [Concomitant]
  4. LYRICA [Concomitant]
  5. ATENOL [Concomitant]
  6. UNKNOWN [Concomitant]

REACTIONS (1)
  - PAIN [None]
